FAERS Safety Report 22111072 (Version 2)
Quarter: 2023Q1

REPORT INFORMATION
  Report Type: Report from Study
  Country: FI (occurrence: FI)
  Receive Date: 20230317
  Receipt Date: 20230324
  Transmission Date: 20230418
  Serious: Yes (Hospitalization, Other)
  Sender: FDA-Public Use
  Company Number: FI-MYLANLABS-2023M1024710

PATIENT
  Age: 51 Year
  Sex: Female

DRUGS (10)
  1. CLOZAPINE [Suspect]
     Active Substance: CLOZAPINE
     Indication: Schizophrenia
     Dosage: UNK
     Route: 065
     Dates: end: 201706
  2. CLOZAPINE [Suspect]
     Active Substance: CLOZAPINE
     Dosage: 200 MILLIGRAM, QD (IN THE EVENING) 25-JAN-2023
     Route: 048
     Dates: end: 202303
  3. CARIPRAZINE [Concomitant]
     Active Substance: CARIPRAZINE
     Dosage: 6 MILLIGRAM, QD
     Route: 065
  4. LITHIUM CARBONATE [Concomitant]
     Active Substance: LITHIUM CARBONATE
     Dosage: 300 MILLIGRAM, QD
     Route: 065
  5. DIAZEPAM [Concomitant]
     Active Substance: DIAZEPAM
     Dosage: 5 MILLIGRAM, TID
     Route: 065
  6. PALIPERIDONE PALMITATE [Concomitant]
     Active Substance: PALIPERIDONE PALMITATE
     Dosage: 150 MILLIGRAM EVERY 30 DAYS
     Route: 030
  7. ALBUTEROL [Concomitant]
     Active Substance: ALBUTEROL
     Dosage: 0.1 MILLIGRAM, BID
     Route: 065
  8. ALVESCO [Concomitant]
     Active Substance: CICLESONIDE
     Dosage: 160 MICROGRAM, BID
     Route: 065
  9. INCRUSE ELLIPTA [Concomitant]
     Active Substance: UMECLIDINIUM BROMIDE
     Dosage: 55 MICROGRAM, QD
     Route: 065
  10. BUDESONIDE [Concomitant]
     Active Substance: BUDESONIDE
     Dosage: 1 MILLIGRAM, BID
     Route: 065

REACTIONS (5)
  - Neutrophil count decreased [Recovering/Resolving]
  - Neutropenia [Recovered/Resolved]
  - C-reactive protein increased [Recovering/Resolving]
  - White blood cell count decreased [Recovered/Resolved]
  - Off label use [Unknown]

NARRATIVE: CASE EVENT DATE: 20170601
